FAERS Safety Report 4895870-7 (Version None)
Quarter: 2006Q1

REPORT INFORMATION
  Report Type: 
  Country: None (occurrence: None)
  Receive Date: 20060125
  Receipt Date: 20040325
  Transmission Date: 20060701
  Serious: Yes (Hospitalization)
  Sender: FDA-Public Use
  Company Number: FR_040303780

PATIENT
  Age: 44 Year
  Sex: Male
  Weight: 59 kg

DRUGS (6)
  1. VANCOMYCIN [Suspect]
     Dates: start: 20040127, end: 20040127
  2. GENTAMICIN SULFATE [Concomitant]
  3. PERISTALTINE (CASCARA DRY EXTRACT) [Concomitant]
  4. OMEPRAZOLE [Concomitant]
  5. MOSCONTIN (MORPHINE SULFATE) [Concomitant]
  6. PRIMPERAN TAB [Concomitant]

REACTIONS (2)
  - ACCIDENTAL OVERDOSE [None]
  - RENAL FAILURE ACUTE [None]
